FAERS Safety Report 24616788 (Version 1)
Quarter: 2024Q4

REPORT INFORMATION
  Report Type: Spontaneous
  Country: US (occurrence: US)
  Receive Date: 20241114
  Receipt Date: 20241114
  Transmission Date: 20250115
  Serious: No
  Sender: OTSUKA
  Company Number: US-OTSUKA-2024_004675

PATIENT
  Sex: Female
  Weight: 62.6 kg

DRUGS (1)
  1. NUEDEXTA [Suspect]
     Active Substance: DEXTROMETHORPHAN HYDROBROMIDE\QUINIDINE SULFATE
     Indication: Depression
     Dosage: 1 DF (20-10MG), BID (TWICE A DAY)
     Route: 065

REACTIONS (1)
  - Product prescribing issue [Unknown]
